FAERS Safety Report 6700030-0 (Version None)
Quarter: 2010Q2

REPORT INFORMATION
  Report Type: 
  Country: None (occurrence: None)
  Receive Date: 20100427
  Receipt Date: 20100427
  Transmission Date: 20101027
  Serious: Yes (Hospitalization)
  Sender: FDA-Public Use
  Company Number: None

PATIENT
  Sex: Female
  Weight: 83.8 kg

DRUGS (2)
  1. L-ASPARAGINASE [Suspect]
     Dosage: 45600 MG
  2. CYTARABINE [Suspect]
     Dosage: 45600 MG

REACTIONS (28)
  - ACIDOSIS [None]
  - AMMONIA INCREASED [None]
  - AZOTAEMIA [None]
  - BACK PAIN [None]
  - BLOOD CREATININE INCREASED [None]
  - BLOOD CULTURE POSITIVE [None]
  - BLOOD PRESSURE ABNORMAL [None]
  - CANDIDIASIS [None]
  - CARDIAC DISORDER [None]
  - CARDIOPULMONARY FAILURE [None]
  - CONGESTIVE CARDIOMYOPATHY [None]
  - CONTINUOUS HAEMODIAFILTRATION [None]
  - DEVICE RELATED INFECTION [None]
  - DRUG TOXICITY [None]
  - DYSPNOEA [None]
  - ENCEPHALOPATHY [None]
  - HEPATIC FUNCTION ABNORMAL [None]
  - HYPERBILIRUBINAEMIA [None]
  - HYPOGLYCAEMIA [None]
  - HYPOTENSION [None]
  - HYPOXIA [None]
  - LEFT VENTRICULAR DYSFUNCTION [None]
  - MENTAL STATUS CHANGES [None]
  - PAIN IN EXTREMITY [None]
  - PANCREATIC HAEMORRHAGE [None]
  - PANCREATIC PSEUDOCYST [None]
  - SEPTIC SHOCK [None]
  - STAPHYLOCOCCAL INFECTION [None]
